FAERS Safety Report 7313682-1 (Version None)
Quarter: 2011Q1

REPORT INFORMATION
  Report Type: 
  Country: None (occurrence: None)
  Receive Date: 20110225
  Receipt Date: 20110218
  Transmission Date: 20110831
  Serious: Yes (Other)
  Sender: FDA-Public Use
  Company Number: ES-PFIZER INC-2011002119

PATIENT
  Age: 13 Year
  Sex: Male
  Weight: 58.3 kg

DRUGS (5)
  1. DARBEPOETIN ALFA [Concomitant]
     Indication: ANAEMIA
     Dosage: UNK
     Route: 058
     Dates: start: 20091026
  2. SOMATROPIN [Suspect]
     Dosage: 2.4 MG, 1X/DAY
     Dates: start: 20070227, end: 20091201
  3. SODIUM BICARBONATE [Concomitant]
     Indication: ACIDOSIS
     Dosage: UNK
     Route: 048
     Dates: start: 19970514
  4. IRON [Concomitant]
     Indication: IRON DEFICIENCY
     Dosage: UNK
     Route: 048
     Dates: start: 20061106
  5. COLECALCIFEROL [Concomitant]
     Indication: HYPERPHOSPHATAEMIA
     Dosage: UNK
     Route: 048
     Dates: start: 20061106

REACTIONS (1)
  - JAW DISORDER [None]
